FAERS Safety Report 21846456 (Version 1)
Quarter: 2023Q1

REPORT INFORMATION
  Report Type: Report from Study
  Country: US (occurrence: US)
  Receive Date: 20230111
  Receipt Date: 20230111
  Transmission Date: 20230418
  Serious: No
  Sender: FDA-Public Use
  Company Number: US-ABBVIE-4230492

PATIENT
  Sex: Female

DRUGS (8)
  1. SKYRIZI [Suspect]
     Active Substance: RISANKIZUMAB-RZAA
     Indication: Psoriasis
     Route: 058
     Dates: start: 20210527
  2. APPLE CIDER VINEGAR [Concomitant]
     Active Substance: APPLE CIDER VINEGAR
     Indication: Product used for unknown indication
     Dosage: 300 MG
  3. COLLAGENASE POWDER [Concomitant]
     Indication: Product used for unknown indication
     Dosage: POWDER
  4. PROBIOTICS NOS [Concomitant]
     Active Substance: PROBIOTICS NOS
     Indication: Product used for unknown indication
     Dosage: 250 MG
  5. CLARITIN [Concomitant]
     Active Substance: LORATADINE
     Indication: Product used for unknown indication
     Dosage: 10 MG
  6. FLUTICASONE PROPIONATE [Concomitant]
     Active Substance: FLUTICASONE PROPIONATE
     Indication: Product used for unknown indication
  7. ASPIRIN [Concomitant]
     Active Substance: ASPIRIN
     Indication: Product used for unknown indication
     Dosage: 81 MG DR
  8. ZINC [Concomitant]
     Active Substance: ZINC
     Indication: Product used for unknown indication
     Dosage: 50 MG

REACTIONS (3)
  - Rash [Not Recovered/Not Resolved]
  - Cough [Recovering/Resolving]
  - Respiratory tract congestion [Recovering/Resolving]
